FAERS Safety Report 23379878 (Version 5)
Quarter: 2024Q1

REPORT INFORMATION
  Report Type: Spontaneous
  Country: RU (occurrence: RU)
  Receive Date: 20240108
  Receipt Date: 20240208
  Transmission Date: 20240410
  Serious: Yes (Hospitalization, Other)
  Sender: FDA-Public Use
  Company Number: RU-ASTELLAS-2024US000172

PATIENT
  Age: 85 Year
  Sex: Male

DRUGS (1)
  1. XTANDI [Suspect]
     Active Substance: ENZALUTAMIDE
     Indication: Prostate cancer
     Dosage: 160 MG, ONCE DAILY (40 MG X 4 CAPSULES (DF))
     Route: 048
     Dates: start: 202211, end: 20231230

REACTIONS (9)
  - Malignant neoplasm progression [Not Recovered/Not Resolved]
  - Brain oedema [Recovered/Resolved]
  - Disorientation [Unknown]
  - Fall [Recovered/Resolved]
  - Tibia fracture [Recovered/Resolved with Sequelae]
  - Encephalopathy [Not Recovered/Not Resolved]
  - Hypokinesia [Unknown]
  - Central nervous system lesion [Not Recovered/Not Resolved]
  - Prostatic specific antigen increased [Unknown]

NARRATIVE: CASE EVENT DATE: 20230101
